FAERS Safety Report 4659727-9 (Version None)
Quarter: 2005Q2

REPORT INFORMATION
  Report Type: 
  Country: None (occurrence: None)
  Receive Date: 20050420
  Receipt Date: 20050314
  Transmission Date: 20051028
  Serious: No
  Sender: FDA-Public Use
  Company Number: PHEH2005US03133

PATIENT
  Age: 77 Year
  Sex: Female

DRUGS (1)
  1. ENABLEX [Suspect]
     Indication: HYPERTONIC BLADDER
     Dosage: 15 MG, QD, UNK
     Dates: start: 20050311, end: 20050312

REACTIONS (2)
  - DRY MOUTH [None]
  - DYSPEPSIA [None]
